FAERS Safety Report 8886014 (Version 3)
Quarter: 2012Q4

REPORT INFORMATION
  Report Type: 
  Country: JP (occurrence: JP)
  Receive Date: 20121105
  Receipt Date: 20121227
  Transmission Date: 20130627
  Serious: Yes (Life-Threatening, Hospitalization)
  Sender: FDA-Public Use
  Company Number: JP-OTSUKA-JP-2012-15565

PATIENT
  Age: 62 Year
  Sex: Male
  Weight: 70 kg

DRUGS (6)
  1. PLETAAL [Suspect]
     Indication: CEREBRAL INFARCTION
     Dosage: 100 Mg milligram(s), bid
     Route: 048
     Dates: start: 20110712, end: 20111006
  2. PLETAAL [Suspect]
     Dosage: 100 Mg milligram(s), bid
     Route: 048
     Dates: start: 20111031
  3. PLAVIX [Suspect]
     Indication: CEREBRAL INFARCTION
     Dosage: 75 Mg milligram(s), qd
     Route: 048
     Dates: start: 20110821, end: 20111006
  4. BLOPRESS [Concomitant]
     Indication: HYPERTENSION
     Dosage: 4 Mg milligram(s), qd
     Route: 048
     Dates: start: 20110712, end: 20111006
  5. LIPITOR [Concomitant]
     Indication: HYPERLIPIDAEMIA
     Dosage: 10 Mg milligram(s), qd
     Route: 048
     Dates: start: 20110712, end: 20111006
  6. BAYASPIRIN [Concomitant]
     Indication: CEREBRAL INFARCTION
     Dosage: 100 Mg milligram(s), qd
     Route: 048
     Dates: end: 20110712

REACTIONS (2)
  - Cerebral haemorrhage [Recovered/Resolved with Sequelae]
  - Subarachnoid haemorrhage [Recovered/Resolved]
